FAERS Safety Report 13724464 (Version 1)
Quarter: 2017Q3

REPORT INFORMATION
  Report Type: Spontaneous
  Country: US (occurrence: US)
  Receive Date: 20170706
  Receipt Date: 20170706
  Transmission Date: 20171127
  Serious: No
  Sender: FDA-Public Use
  Company Number: US-JUBILANT CADISTA PHARMACEUTICALS-2016JUB00222

PATIENT
  Age: 72 Year
  Sex: Female
  Weight: 48.98 kg

DRUGS (14)
  1. IMITREX [Concomitant]
     Active Substance: SUMATRIPTAN SUCCINATE
     Dosage: UNK, AS NEEDED
  2. ZYRTEC [Concomitant]
     Active Substance: CETIRIZINE HYDROCHLORIDE
  3. A LOT OF SUPPLEMENTS [Concomitant]
     Dosage: UNK
     Dates: end: 201604
  4. IMODIUM [Concomitant]
     Active Substance: LOPERAMIDE HYDROCHLORIDE
     Indication: CONSTIPATION
  5. EXCEDRIN (UNSPECIFIED) [Concomitant]
     Dosage: 2 DOSAGE UNITS, 1X/DAY
  6. REFRESH EYE DROPS [Concomitant]
  7. BOTOX [Concomitant]
     Active Substance: ONABOTULINUMTOXINA
  8. PROBIOTICS [Concomitant]
     Active Substance: PROBIOTICS NOS
  9. FIBER CHOICE [Concomitant]
     Indication: CONSTIPATION
  10. CALCIUM [Concomitant]
     Active Substance: CALCIUM
     Indication: BONE DENSITY ABNORMAL
  11. EXCEDRIN (UNSPECIFIED) [Concomitant]
     Dosage: UNK, AS NEEDED
  12. MECLIZINE HYDROCHLORIDE. [Suspect]
     Active Substance: MECLIZINE HYDROCHLORIDE
     Indication: VERTIGO
     Dosage: 3 TABLETS, 4X/DAY
     Route: 048
     Dates: start: 20160324, end: 20160401
  13. MS CONTIN [Concomitant]
     Active Substance: MORPHINE SULFATE
     Dosage: 1 DOSAGE UNITS, 3X/DAY
     Route: 048
     Dates: start: 2006
  14. NEURONTIN [Concomitant]
     Active Substance: GABAPENTIN
     Dosage: 3 UNK, 3X/DAY
     Route: 048

REACTIONS (1)
  - Rash pruritic [Recovered/Resolved]

NARRATIVE: CASE EVENT DATE: 20160330
